FAERS Safety Report 6290622-8 (Version None)
Quarter: 2009Q3

REPORT INFORMATION
  Report Type: 
  Country: None (occurrence: None)
  Receive Date: 20090728
  Receipt Date: 20090728
  Transmission Date: 20100115
  Serious: Yes (Other)
  Sender: FDA-Public Use
  Company Number: None

PATIENT
  Age: 8 Year
  Sex: Male
  Weight: 22.6799 kg

DRUGS (2)
  1. SINGULAIR [Suspect]
     Indication: ASTHMA
     Dosage: 1 TABLET EVERY NIGHT PO
     Route: 048
     Dates: start: 20051101, end: 20090727
  2. SINGULAIR [Suspect]
     Indication: MULTIPLE ALLERGIES
     Dosage: 1 TABLET EVERY NIGHT PO
     Route: 048
     Dates: start: 20051101, end: 20090727

REACTIONS (6)
  - ANXIETY [None]
  - FEAR [None]
  - FRUSTRATION [None]
  - OBSESSIVE THOUGHTS [None]
  - SELF ESTEEM DECREASED [None]
  - SUICIDAL IDEATION [None]
